FAERS Safety Report 4439783-3 (Version None)
Quarter: 2004Q3

REPORT INFORMATION
  Report Type: 
  Country: None (occurrence: None)
  Receive Date: 20040902
  Receipt Date: 20040825
  Transmission Date: 20050211
  Serious: Yes (Death)
  Sender: FDA-Public Use
  Company Number: CA-JNJFOC-20040808006

PATIENT
  Sex: Female
  Weight: 76.2 kg

DRUGS (10)
  1. DURAGESIC [Suspect]
     Route: 062
  2. DURAGESIC [Suspect]
     Route: 062
  3. DURAGESIC [Suspect]
     Route: 062
  4. DURAGESIC [Suspect]
     Route: 062
  5. OXYCOCET [Concomitant]
  6. OXYCOCET [Concomitant]
     Dosage: AS NEEDED FOR BREAKTHROUGH PAIN (APPROXIMATELY THREE TABLETS PER DAY)
  7. RISPERDAL [Concomitant]
  8. SEROQUEL [Concomitant]
  9. ATIVAN [Concomitant]
     Dosage: AS NEEDED
  10. ARIMIDEX [Concomitant]

REACTIONS (3)
  - EYE MOVEMENT DISORDER [None]
  - MEDICATION ERROR [None]
  - SOMNOLENCE [None]
